FAERS Safety Report 8966263 (Version 2)
Quarter: 2013Q1

REPORT INFORMATION
  Report Type: Spontaneous
  Country: US (occurrence: US)
  Receive Date: 20121217
  Receipt Date: 20130121
  Transmission Date: 20140127
  Serious: Yes (Hospitalization)
  Sender: FDA-Public Use
  Company Number: US-AMGEN-USASP2012079139

PATIENT
  Age: 46 Year
  Sex: Female
  Weight: 69.84 kg

DRUGS (7)
  1. ENBREL [Suspect]
     Indication: RHEUMATOID ARTHRITIS
     Dosage: 50 MG, QWK
     Route: 058
     Dates: start: 2007, end: 2012
  2. LEVOXYL [Concomitant]
     Indication: HYPOTHYROIDISM
     Dosage: 0.88 MUG, QD
     Route: 048
  3. FELDENE [Concomitant]
     Indication: ANALGESIC THERAPY
     Dosage: 20 MG, QD
     Route: 048
  4. NEXIUM                             /01479302/ [Concomitant]
     Indication: GASTROINTESTINAL PAIN
     Dosage: 40 MG, QD
     Route: 048
  5. CALAN                              /00014302/ [Concomitant]
     Indication: HYPERTENSION
     Dosage: 180 MG, QD
     Route: 048
  6. ELAVIL                             /00002202/ [Concomitant]
     Indication: INSOMNIA
     Dosage: 50 MG, QD
     Route: 048
  7. PREDNISONE [Concomitant]
     Dosage: 80 MG, UNK

REACTIONS (1)
  - Polymyositis [Recovering/Resolving]
